FAERS Safety Report 14535175 (Version 2)
Quarter: 2018Q1

REPORT INFORMATION
  Report Type: Report from Study
  Country: US (occurrence: US)
  Receive Date: 20180215
  Receipt Date: 20180312
  Transmission Date: 20180509
  Serious: Yes (Hospitalization, Other)
  Sender: FDA-Public Use
  Company Number: US-OTSUKA-2018_000828

PATIENT
  Sex: Female

DRUGS (2)
  1. SALT [Suspect]
     Active Substance: SODIUM CHLORIDE
     Indication: PRODUCT USED FOR UNKNOWN INDICATION
     Dosage: UNK
     Route: 065
  2. TOLVAPTAN [Suspect]
     Active Substance: TOLVAPTAN
     Indication: INAPPROPRIATE ANTIDIURETIC HORMONE SECRETION
     Dosage: 7.5 MG, QD (15 MG BY SPLITTING)
     Route: 048

REACTIONS (8)
  - Atrial fibrillation [Unknown]
  - Underdose [Unknown]
  - Aortic valve disease [Not Recovered/Not Resolved]
  - Incorrect drug administration duration [Unknown]
  - Heart valve operation [Unknown]
  - Wrong technique in product usage process [Unknown]
  - Cerebrovascular accident [Unknown]
  - Aneurysm [Unknown]

NARRATIVE: CASE EVENT DATE: 2013
